FAERS Safety Report 24357924 (Version 1)
Quarter: 2024Q3

REPORT INFORMATION
  Report Type: Spontaneous
  Country: CN (occurrence: CN)
  Receive Date: 20240924
  Receipt Date: 20240924
  Transmission Date: 20241016
  Serious: Yes (Hospitalization)
  Sender: GLAXOSMITHKLINE
  Company Number: CN-GLAXOSMITHKLINE-CN2024GSK116941

PATIENT

DRUGS (3)
  1. ZEJULA [Suspect]
     Active Substance: NIRAPARIB
     Indication: Serous cystadenocarcinoma ovary
     Dosage: 200 MG, QD
     Route: 048
     Dates: start: 20240805, end: 20240825
  2. BEVACIZUMAB [Concomitant]
     Active Substance: BEVACIZUMAB
     Indication: Serous cystadenocarcinoma ovary
     Dosage: 0.4 G (ONCE)
     Route: 041
     Dates: start: 20240805, end: 20240805
  3. SODIUM CHLORIDE [Concomitant]
     Active Substance: SODIUM CHLORIDE
     Indication: Ovarian cancer
     Dosage: 100 ML (0.9%)
     Route: 042

REACTIONS (3)
  - Oropharyngeal pain [Unknown]
  - Platelet count decreased [Recovering/Resolving]
  - Condition aggravated [Recovering/Resolving]

NARRATIVE: CASE EVENT DATE: 20240823
